FAERS Safety Report 12369008 (Version 1)
Quarter: 2016Q2

REPORT INFORMATION
  Report Type: Spontaneous
  Country: GB (occurrence: GB)
  Receive Date: 20160513
  Receipt Date: 20160513
  Transmission Date: 20160815
  Serious: Yes (Disabling, Other)
  Sender: FDA-Public Use
  Company Number: GB-AUROBINDO-AUR-APL-2016-05785

PATIENT
  Age: 50 Year
  Sex: Female
  Weight: 82.55 kg

DRUGS (2)
  1. MIRTAZAPINE 15MG [Suspect]
     Active Substance: MIRTAZAPINE
     Indication: DEPRESSION
     Dosage: 15 MG, UNK
     Route: 048
     Dates: start: 201512, end: 20160421
  2. TRAMADOL. [Concomitant]
     Active Substance: TRAMADOL
     Indication: PRODUCT USED FOR UNKNOWN INDICATION
     Route: 065

REACTIONS (6)
  - Pain [Unknown]
  - Pyrexia [Recovered/Resolved]
  - Joint swelling [Recovered/Resolved with Sequelae]
  - Arthralgia [Recovering/Resolving]
  - Peripheral swelling [Recovered/Resolved with Sequelae]
  - Local swelling [Recovered/Resolved]

NARRATIVE: CASE EVENT DATE: 201601
